FAERS Safety Report 4728037-3 (Version None)
Quarter: 2005Q3

REPORT INFORMATION
  Report Type: 
  Country: None (occurrence: None)
  Receive Date: 20050725
  Receipt Date: 20050411
  Transmission Date: 20060218
  Serious: No
  Sender: FDA-Public Use
  Company Number: USA050495310

PATIENT
  Age: 7 Year
  Sex: Female
  Weight: 21 kg

DRUGS (1)
  1. STRATTERA [Suspect]
     Indication: DISTURBANCE IN ATTENTION
     Dosage: 40 MG AT BEDTIME
     Dates: start: 20050201

REACTIONS (3)
  - PRESCRIBED OVERDOSE [None]
  - VOMITING [None]
  - WEIGHT DECREASED [None]
